FAERS Safety Report 4675917-3 (Version None)
Quarter: 2005Q2

REPORT INFORMATION
  Report Type: 
  Country: None (occurrence: None)
  Receive Date: 20050526
  Receipt Date: 20050526
  Transmission Date: 20051028
  Serious: Yes (Hospitalization)
  Sender: FDA-Public Use
  Company Number: None

PATIENT
  Sex: Male
  Weight: 90.8 kg

DRUGS (3)
  1. IRINOTECAN [Suspect]
     Dosage: 50 MG/M2 IV DAYS 1 + 8, OVER 90 MINS
     Route: 042
  2. CISPLATIN [Suspect]
     Dosage: 20MG/M2 IV OVER 60 MINS DAYS 1 + 8 OF EACH 3 WEEK CYCLE
     Route: 042
  3. ETOPOSIDE [Suspect]
     Dosage: 85 MG/M2 PO DIVIDED IN 2 DOSES Q 12 HR. DAYS 3 + 10 OF EACH CYCLE
     Route: 048

REACTIONS (9)
  - BLOOD CULTURE POSITIVE [None]
  - DYSPNOEA EXERTIONAL [None]
  - FATIGUE [None]
  - HAEMOGLOBIN DECREASED [None]
  - NEUTROPHIL COUNT DECREASED [None]
  - OXYGEN SATURATION DECREASED [None]
  - PULMONARY EMBOLISM [None]
  - PYREXIA [None]
  - RED BLOOD CELL COUNT DECREASED [None]
